FAERS Safety Report 12494119 (Version 1)
Quarter: 2016Q2

REPORT INFORMATION
  Report Type: Report from Study
  Country: BR (occurrence: BR)
  Receive Date: 20160623
  Receipt Date: 20160623
  Transmission Date: 20160815
  Serious: Yes (Life-Threatening, Other)
  Sender: FDA-Public Use
  Company Number: PHHY2016BR083911

PATIENT
  Sex: Male
  Weight: 75 kg

DRUGS (3)
  1. SEEBRI BREEZHALER [Suspect]
     Active Substance: GLYCOPYRROLATE
     Indication: DYSPNOEA
     Dosage: 50 UG, QD
     Route: 055
  2. ONBREZ BREEZHALER [Suspect]
     Active Substance: INDACATEROL
     Indication: BRONCHITIS
     Dosage: 150 MG, QD
     Route: 055
  3. ONBREZ BREEZHALER [Suspect]
     Active Substance: INDACATEROL
     Indication: DYSPNOEA
     Dosage: 150 UG, QD
     Route: 055

REACTIONS (17)
  - Blood pressure increased [Unknown]
  - Condition aggravated [Unknown]
  - Urine abnormality [Unknown]
  - Sluggishness [Unknown]
  - Product use issue [Unknown]
  - Malaise [Unknown]
  - Confusional state [Unknown]
  - Apparent death [Unknown]
  - Drug intolerance [Unknown]
  - Chest discomfort [Unknown]
  - Dry throat [Unknown]
  - Hypoacusis [Unknown]
  - Visual impairment [Unknown]
  - Sputum increased [Unknown]
  - Hypersensitivity [Unknown]
  - Tremor [Unknown]
  - Cough [Unknown]
